FAERS Safety Report 12911485 (Version 1)
Quarter: 2016Q4

REPORT INFORMATION
  Report Type: Spontaneous
  Country: US (occurrence: US)
  Receive Date: 20161102
  Receipt Date: 20161102
  Transmission Date: 20170207
  Serious: Yes (Other)
  Sender: FDA-Public Use
  Company Number: None

PATIENT
  Age: 72 Year
  Sex: Female

DRUGS (1)
  1. AMOIDARONE [Suspect]
     Active Substance: AMIODARONE
     Route: 048
     Dates: start: 20161026, end: 20161028

REACTIONS (1)
  - Hallucination [None]

NARRATIVE: CASE EVENT DATE: 20161027
